FAERS Safety Report 13843518 (Version 1)
Quarter: 2017Q3

REPORT INFORMATION
  Report Type: Spontaneous
  Country: US (occurrence: US)
  Receive Date: 20170808
  Receipt Date: 20170808
  Transmission Date: 20171127
  Serious: Yes (Other)
  Sender: FDA-Public Use
  Company Number: None

PATIENT
  Sex: Male
  Weight: 61.65 kg

DRUGS (11)
  1. BETAINE HCL [Concomitant]
  2. COQ10 [Concomitant]
     Active Substance: UBIDECARENONE
  3. CRANBERRY JUICE EXTRACT [Concomitant]
     Active Substance: CRANBERRY JUICE
  4. LOSARTAN. [Concomitant]
     Active Substance: LOSARTAN
  5. VITAMIN B6 [Concomitant]
     Active Substance: PYRIDOXINE HYDROCHLORIDE
  6. DEPLIN [Concomitant]
     Active Substance: LEVOMEFOLATE CALCIUM
  7. CARBIDOPA AND LEVODOPA [Suspect]
     Active Substance: CARBIDOPA\LEVODOPA
     Indication: PARKINSONISM
     Dosage: ?          QUANTITY:1 TABLET(S);?
     Route: 048
     Dates: start: 20170602
  8. BABY ASPIRIN [Concomitant]
     Active Substance: ASPIRIN
  9. AZILECT [Suspect]
     Active Substance: RASAGILINE MESYLATE
  10. VITAMIN B2 [Concomitant]
     Active Substance: RIBOFLAVIN
  11. VITAMIN B12 [Concomitant]
     Active Substance: CYANOCOBALAMIN

REACTIONS (2)
  - Product substitution issue [None]
  - Drug effect decreased [None]

NARRATIVE: CASE EVENT DATE: 20170602
